FAERS Safety Report 21440054 (Version 1)
Quarter: 2022Q4

REPORT INFORMATION
  Report Type: Spontaneous
  Country: IT (occurrence: IT)
  Receive Date: 20221011
  Receipt Date: 20221011
  Transmission Date: 20230113
  Serious: Yes (Other)
  Sender: FDA-Public Use
  Company Number: IT-PFIZER INC-PV202200073122

PATIENT
  Age: 51 Year
  Sex: Female

DRUGS (7)
  1. METHOTREXATE SODIUM [Suspect]
     Active Substance: METHOTREXATE SODIUM
     Indication: Ocular lymphoma
     Dosage: UNK, 2X/WEEK ( INTRAVITREAL/400 MG/0.1 ML) WAS STARTED IN BOTH EYES, BIWEEKLY IN THE FIRST MONTH)
  2. METHOTREXATE SODIUM [Suspect]
     Active Substance: METHOTREXATE SODIUM
     Indication: Leukaemic infiltration
     Dosage: UNK, WEEKLY ( INTRAVITREAL/400 MG/0.1 ML) WAS STARTED IN BOTH EYES,WEEKLY FOR 2 MONTHS)
  3. METHOTREXATE SODIUM [Suspect]
     Active Substance: METHOTREXATE SODIUM
     Dosage: UNK, MONTHLY ( INTRAVITREAL/MONTHLY THEREAFTER)
  4. METHOTREXATE SODIUM [Suspect]
     Active Substance: METHOTREXATE SODIUM
     Dosage: UNK
     Route: 037
  5. FLUDARABINE [Suspect]
     Active Substance: FLUDARABINE PHOSPHATE
     Indication: Ocular lymphoma
     Dosage: UNK
  6. CYTARABINE [Suspect]
     Active Substance: CYTARABINE
     Indication: Ocular lymphoma
     Dosage: UNK
  7. IDARUBICIN [Suspect]
     Active Substance: IDARUBICIN
     Indication: Ocular lymphoma
     Dosage: UNK

REACTIONS (1)
  - Graft versus host disease [Unknown]
